FAERS Safety Report 4432976-0 (Version None)
Quarter: 2004Q3

REPORT INFORMATION
  Report Type: 
  Country: None (occurrence: None)
  Receive Date: 20040823
  Receipt Date: 20040812
  Transmission Date: 20050211
  Serious: Yes (Life-Threatening)
  Sender: FDA-Public Use
  Company Number: 2004228046US

PATIENT
  Age: 11 Year
  Sex: Female
  Weight: 58.6 kg

DRUGS (3)
  1. GENOTROPIN [Suspect]
     Indication: PRADER-WILLI SYNDROME
     Dosage: 9.8 MG, WEEKLY, SUBCUTANEOUS
     Route: 058
     Dates: start: 20020307, end: 20030722
  2. CLARITIN [Concomitant]
  3. SYNTHROID [Concomitant]

REACTIONS (1)
  - SLEEP APNOEA SYNDROME [None]
